FAERS Safety Report 9482240 (Version 3)
Quarter: 2013Q3

REPORT INFORMATION
  Report Type: Report from Study
  Country: AU (occurrence: AU)
  Receive Date: 20130828
  Receipt Date: 20130917
  Transmission Date: 20140515
  Serious: Yes (Life-Threatening, Hospitalization, Other)
  Sender: FDA-Public Use
  Company Number: AU-ASTELLAS-2013US009101

PATIENT
  Age: 64 Year
  Sex: Male

DRUGS (1)
  1. ERLOTINIB TABLET [Suspect]
     Indication: LUNG ADENOCARCINOMA
     Dosage: 150 MG, UID/QD
     Route: 048
     Dates: start: 20130221, end: 20130615

REACTIONS (6)
  - Atrial fibrillation [Unknown]
  - Hypertension [Unknown]
  - Convulsion [Unknown]
  - Renal failure acute [Unknown]
  - Deep vein thrombosis [Unknown]
  - Cerebellar haemorrhage [Recovering/Resolving]
